FAERS Safety Report 5981249-3 (Version None)
Quarter: 2008Q4

REPORT INFORMATION
  Report Type: 
  Country: None (occurrence: None)
  Receive Date: 20081205
  Receipt Date: 20081127
  Transmission Date: 20090506
  Serious: Yes (Other)
  Sender: FDA-Public Use
  Company Number: FR-SANOFI-SYNTHELABO-A02200803588

PATIENT
  Sex: Male

DRUGS (5)
  1. IMOVANE [Concomitant]
     Dosage: UNK
     Route: 048
  2. LEXOMIL [Concomitant]
     Route: 048
  3. SEROPLEX [Concomitant]
     Dosage: UNK
     Route: 048
  4. XELODA [Concomitant]
     Route: 048
  5. ELOXATIN [Suspect]
     Indication: RECTAL CANCER
     Route: 041

REACTIONS (2)
  - CONVULSION [None]
  - MENINGEAL DISORDER [None]
